FAERS Safety Report 25675765 (Version 1)
Quarter: 2025Q3

REPORT INFORMATION
  Report Type: Spontaneous
  Country: US (occurrence: None)
  Receive Date: 20250812
  Receipt Date: 20250812
  Transmission Date: 20251020
  Serious: Yes (Death)
  Sender: FDA-CTU
  Company Number: None

PATIENT
  Age: 47 Year
  Sex: Male
  Weight: 113.4 kg

DRUGS (8)
  1. CLOZAPINE [Suspect]
     Active Substance: CLOZAPINE
     Indication: Mental disorder
     Dosage: FREQUENCY : TWICE A DAY;?
     Route: 048
  2. CLOZAPINE [Suspect]
     Active Substance: CLOZAPINE
     Indication: Bipolar disorder
  3. CLOZAPINE [Concomitant]
     Active Substance: CLOZAPINE
  4. Norclozape [Concomitant]
  5. CITALOPRAM [Concomitant]
     Active Substance: CITALOPRAM
  6. CAFFEINE [Concomitant]
     Active Substance: CAFFEINE
  7. METOPROLOL [Concomitant]
     Active Substance: METOPROLOL
  8. GABAPENTIN [Concomitant]
     Active Substance: GABAPENTIN

REACTIONS (2)
  - Product communication issue [None]
  - Thrombosis [None]

NARRATIVE: CASE EVENT DATE: 20230802
